FAERS Safety Report 10978572 (Version 5)
Quarter: 2016Q3

REPORT INFORMATION
  Report Type: Report from Study
  Country: AT (occurrence: AT)
  Receive Date: 20150402
  Receipt Date: 20160909
  Transmission Date: 20161109
  Serious: Yes (Death, Hospitalization, Other)
  Sender: FDA-Public Use
  Company Number: AT-INCYTE CORPORATION-2014IN000806

PATIENT
  Age: 73 Year
  Sex: Female
  Weight: 61 kg

DRUGS (29)
  1. JAKAFI [Suspect]
     Active Substance: RUXOLITINIB
     Dosage: 10 MG, BID
     Route: 048
     Dates: start: 20131203, end: 20131207
  2. THROMBO ASS [Concomitant]
     Active Substance: ASPIRIN
     Indication: PRODUCT USED FOR UNKNOWN INDICATION
  3. JAKAFI [Suspect]
     Active Substance: RUXOLITINIB
     Dosage: 10 MG, UNK
     Route: 048
     Dates: start: 20140707, end: 20140930
  4. PANTOLOC//PANTOPRAZOLE SODIUM SESQUIHYDRATE [Concomitant]
     Active Substance: PANTOPRAZOLE SODIUM
     Indication: PRODUCT USED FOR UNKNOWN INDICATION
  5. MIRANAX//NAPROXEN [Concomitant]
     Dosage: UNK
     Route: 065
     Dates: start: 20130326
  6. JAKAFI [Suspect]
     Active Substance: RUXOLITINIB
     Dosage: 30 MG, UNK
     Route: 048
     Dates: start: 20140408, end: 20140416
  7. PANTOLOC//PANTOPRAZOLE SODIUM SESQUIHYDRATE [Concomitant]
     Active Substance: PANTOPRAZOLE SODIUM
     Indication: ULCER
     Dosage: UNK
     Route: 065
     Dates: start: 20110321
  8. MIRANAX//NAPROXEN [Concomitant]
     Indication: GOUT
     Dosage: UNK
     Route: 065
     Dates: start: 20110326
  9. MOTRIM [Concomitant]
     Active Substance: TRIMETHOPRIM
     Indication: URINARY TRACT INFECTION
     Dosage: UNK
     Route: 065
     Dates: start: 20141122, end: 20141128
  10. JAKAFI [Suspect]
     Active Substance: RUXOLITINIB
     Indication: MYELOFIBROSIS
     Dosage: 20 MG, UNK
     Route: 048
     Dates: start: 20130621, end: 20131112
  11. SAROTEN [Concomitant]
     Active Substance: AMITRIPTYLINE
     Indication: DEPRESSION
     Dosage: 25 MG, UNK
     Route: 065
     Dates: start: 2011
  12. AMLODIPIN//AMLODIPINE BESILATE [Concomitant]
     Indication: HYPERTENSION
     Dosage: UNK
     Route: 065
     Dates: start: 20110321, end: 201312
  13. MOVICOL [Concomitant]
     Active Substance: POLYETHYLENE GLYCOL 3350\POTASSIUM CHLORIDE\SODIUM BICARBONATE\SODIUM CHLORIDE
     Indication: CONSTIPATION
     Dosage: UNK
     Route: 065
     Dates: start: 201401, end: 201408
  14. ACTIVE MAGNESIUM [Concomitant]
     Indication: NUTRITIONAL SUPPLEMENTATION
     Dosage: UNK
     Route: 065
     Dates: start: 201401
  15. KCL [Concomitant]
     Active Substance: POTASSIUM CHLORIDE
     Indication: PRODUCT USED FOR UNKNOWN INDICATION
  16. JAKAFI [Suspect]
     Active Substance: RUXOLITINIB
     Dosage: 20 MG, UNK
     Route: 048
     Dates: start: 20141001, end: 20150219
  17. JAKAFI [Suspect]
     Active Substance: RUXOLITINIB
     Dosage: 10 MG, UNK
     Route: 048
     Dates: start: 20150220, end: 20150320
  18. THROMBO ASS [Concomitant]
     Active Substance: ASPIRIN
     Indication: THROMBOSIS PROPHYLAXIS
     Dosage: UNK
     Route: 065
     Dates: start: 20120821, end: 201408
  19. PSYCHOPAX [Concomitant]
     Active Substance: DIAZEPAM
     Indication: SLEEP DISORDER
     Dosage: UNK
     Route: 065
     Dates: start: 201401, end: 201408
  20. VOLTAREN [Concomitant]
     Active Substance: DICLOFENAC SODIUM
     Indication: ABDOMINAL PAIN
     Dosage: UNK
     Route: 065
     Dates: start: 20140729
  21. JAKAFI [Suspect]
     Active Substance: RUXOLITINIB
     Dosage: UNK
     Route: 048
     Dates: start: 20140417, end: 20140426
  22. KCL [Concomitant]
     Active Substance: POTASSIUM CHLORIDE
     Indication: HYPOKALAEMIA
     Dosage: UNK
     Route: 065
     Dates: start: 201401, end: 201408
  23. JAKAFI [Suspect]
     Active Substance: RUXOLITINIB
     Indication: MYELOFIBROSIS
     Dosage: 10 MG, QD
     Route: 048
     Dates: start: 20130607
  24. JAKAFI [Suspect]
     Active Substance: RUXOLITINIB
     Dosage: 20 MG, UNK
     Route: 048
     Dates: start: 20140507, end: 20140706
  25. UROCIN                             /00138601/ [Concomitant]
     Indication: GOUT
     Dosage: 300 MG, UNK
     Route: 065
     Dates: start: 20130315, end: 201311
  26. PARACODIN                               /GFR/ [Concomitant]
     Indication: COUGH
     Dosage: UNK
     Route: 065
     Dates: start: 201404, end: 201408
  27. JAKAFI [Suspect]
     Active Substance: RUXOLITINIB
     Dosage: 10 MG, UNK
     Route: 048
     Dates: start: 20140427, end: 20140506
  28. DAFLON 500 [Concomitant]
     Indication: TEMPORAL ARTERITIS
     Dosage: 500 MG, UNK
     Route: 065
     Dates: start: 20110321
  29. VOLTAREN [Concomitant]
     Active Substance: DICLOFENAC SODIUM
     Dosage: UNK
     Route: 065
     Dates: start: 20140729

REACTIONS (42)
  - Vasculitis [Recovered/Resolved]
  - Urinary tract infection [Recovered/Resolved]
  - Gamma-glutamyltransferase increased [Unknown]
  - Blood bilirubin increased [Unknown]
  - Pancytopenia [Recovered/Resolved]
  - Febrile neutropenia [Recovered/Resolved]
  - Fungal infection [Recovered/Resolved]
  - Blood glucose decreased [Unknown]
  - Diffuse large B-cell lymphoma [Recovered/Resolved]
  - Urinary tract infection [Recovered/Resolved]
  - Red blood cell count decreased [Unknown]
  - Red cell distribution width increased [Unknown]
  - Blood cholinesterase decreased [Unknown]
  - Blood lactate dehydrogenase increased [Unknown]
  - C-reactive protein increased [Unknown]
  - White blood cell count increased [Unknown]
  - Febrile neutropenia [Recovered/Resolved]
  - Prothrombin time prolonged [Unknown]
  - Polychromasia [Unknown]
  - Blood triglycerides increased [Unknown]
  - General physical health deterioration [Not Recovered/Not Resolved]
  - Pneumonia [Recovered/Resolved]
  - Blood creatine phosphokinase MB increased [Unknown]
  - Glomerular filtration rate decreased [Unknown]
  - Blood creatinine increased [Unknown]
  - Second primary malignancy [Recovered/Resolved]
  - Fungal infection [Recovered/Resolved]
  - Urinary tract infection [Recovered/Resolved]
  - Blood urea increased [Unknown]
  - Protein total decreased [Unknown]
  - Blood albumin decreased [Unknown]
  - Myelofibrosis [Fatal]
  - Aspartate aminotransferase increased [Unknown]
  - Epistaxis [Recovered/Resolved]
  - Haemoglobin decreased [Unknown]
  - Multiple organ dysfunction syndrome [Fatal]
  - Platelet count decreased [Unknown]
  - Haematoma [Unknown]
  - Blood alkaline phosphatase increased [Unknown]
  - Blood uric acid increased [Unknown]
  - Blood potassium decreased [Unknown]
  - Blood phosphorus decreased [Unknown]

NARRATIVE: CASE EVENT DATE: 20131022
